FAERS Safety Report 4669091-7 (Version None)
Quarter: 2005Q2

REPORT INFORMATION
  Report Type: 
  Country: None (occurrence: None)
  Receive Date: 20050523
  Receipt Date: 20041026
  Transmission Date: 20051028
  Serious: Yes (Other)
  Sender: FDA-Public Use
  Company Number: PHRM2004FR03227

PATIENT
  Age: 40 Year
  Sex: Female
  Weight: 54 kg

DRUGS (3)
  1. ZOMETA [Suspect]
     Indication: METASTASES TO BONE
     Dosage: 4 MG, QMO
     Route: 042
     Dates: start: 20021001, end: 20041101
  2. ARIMIDEX [Concomitant]
     Indication: METASTASES TO BONE
     Dosage: 1 MG, QD
     Route: 048
     Dates: start: 20031201
  3. ENANTONE - SLOW RELEASE [Concomitant]
     Indication: METASTASES TO BONE
     Dosage: 3.75 MG, QMO
     Dates: start: 20031201

REACTIONS (5)
  - BONE LESION [None]
  - OSTEITIS DEFORMANS [None]
  - OSTEONECROSIS [None]
  - PAIN IN JAW [None]
  - SURGERY [None]
